FAERS Safety Report 4544299-X (Version None)
Quarter: 2004Q4

REPORT INFORMATION
  Report Type: 
  Country: None (occurrence: None)
  Receive Date: 20041230
  Receipt Date: 20041217
  Transmission Date: 20050328
  Serious: Yes (Hospitalization, Disabling)
  Sender: FDA-Public Use
  Company Number: DSA_24535_2004

PATIENT
  Age: 79 Year
  Sex: Female

DRUGS (8)
  1. TEVETEN HCT [Suspect]
     Indication: HYPERTENSION
     Dates: start: 20030915, end: 20031225
  2. TEVETEN [Suspect]
     Indication: HYPERTENSION
     Dosage: 600 MG PO
     Route: 048
     Dates: start: 20031225, end: 20040113
  3. TEVETEN [Suspect]
     Indication: HYPERTENSION
     Dosage: 600 MG PO
     Route: 048
     Dates: start: 20030818, end: 20030914
  4. LITHIUM CARBONATE [Suspect]
     Indication: BIPOLAR DISORDER
     Dosage: 250 MG Q DAY PO
     Route: 048
     Dates: start: 19910103, end: 20031224
  5. ACTONEL [Suspect]
     Indication: OSTEOPOROSIS
     Dosage: 70 MG QWK PO
     Route: 048
     Dates: start: 20031213, end: 20031224
  6. CALTRATE [Suspect]
     Indication: OSTEOPOROSIS
     Dosage: 600 MG Q DAY PO
     Route: 048
     Dates: start: 20030508, end: 20031224
  7. NORVASC [Concomitant]
  8. RISPERIDONE [Concomitant]

REACTIONS (6)
  - CIRCULATORY COLLAPSE [None]
  - CLOSTRIDIUM COLITIS [None]
  - HYPERCALCAEMIA [None]
  - ISCHAEMIC STROKE [None]
  - SALIVARY HYPERSECRETION [None]
  - THERAPEUTIC AGENT TOXICITY [None]
